FAERS Safety Report 17336567 (Version 1)
Quarter: 2020Q1

REPORT INFORMATION
  Report Type: Spontaneous
  Country: GB (occurrence: GB)
  Receive Date: 20200128
  Receipt Date: 20200128
  Transmission Date: 20200409
  Serious: Yes (Hospitalization)
  Sender: FDA-Public Use
  Company Number: GB-VERTEX PHARMACEUTICALS-2020-001335

PATIENT
  Age: 22 Year
  Sex: Female

DRUGS (3)
  1. COLOMYCIN [COLISTIN SULFATE] [Concomitant]
     Active Substance: COLISTIN SULFATE
  2. KALYDECO [Suspect]
     Active Substance: IVACAFTOR
     Indication: CYSTIC FIBROSIS
     Dosage: 150 MILLIGRAM, BID
     Route: 048
     Dates: start: 2013
  3. PULMOZYME [Concomitant]
     Active Substance: DORNASE ALFA

REACTIONS (1)
  - Influenza [Unknown]

NARRATIVE: CASE EVENT DATE: 202001
